FAERS Safety Report 6704709-6 (Version None)
Quarter: 2010Q2

REPORT INFORMATION
  Report Type: 
  Country: None (occurrence: None)
  Receive Date: 20100430
  Receipt Date: 20100423
  Transmission Date: 20101027
  Serious: Yes (Hospitalization, Other)
  Sender: FDA-Public Use
  Company Number: US-BAYER-201014675BCC

PATIENT
  Age: 69 Year
  Sex: Male
  Weight: 136 kg

DRUGS (5)
  1. ORIGINAL ALKA SELTZER [Suspect]
     Indication: DRUG USE FOR UNKNOWN INDICATION
     Dosage: CONSUMER INGESTED 4 TO 8 PACKS ON AND OFF ON AN UNKNOWN PERIOD
     Route: 048
     Dates: start: 20000101
  2. ZESTERTIC [Concomitant]
  3. MORPHINE [Concomitant]
  4. CLONAZEPAM [Concomitant]
  5. CENTRUM SENIOR [Concomitant]

REACTIONS (4)
  - BLOOD ELECTROLYTES DECREASED [None]
  - BLOOD POTASSIUM DECREASED [None]
  - DRUG DEPENDENCE [None]
  - PALPITATIONS [None]
